FAERS Safety Report 7730970-5 (Version None)
Quarter: 2011Q3

REPORT INFORMATION
  Report Type: 
  Country: None (occurrence: None)
  Receive Date: 20110817
  Receipt Date: 20110413
  Transmission Date: 20111222
  Serious: Yes (Other)
  Sender: FDA-Public Use
  Company Number: 20096295

PATIENT
  Sex: Male

DRUGS (1)
  1. LIORESAL [Suspect]
     Indication: MUSCLE SPASTICITY
     Dosage: DAILY, INTRATHECAL
     Route: 037

REACTIONS (8)
  - MUSCLE SPASTICITY [None]
  - ABDOMINAL DISCOMFORT [None]
  - MUSCLE TIGHTNESS [None]
  - ANXIETY [None]
  - THINKING ABNORMAL [None]
  - BURNING SENSATION [None]
  - PARAESTHESIA [None]
  - HYPOTONIA [None]
